FAERS Safety Report 10224844 (Version 1)
Quarter: 2014Q2

REPORT INFORMATION
  Report Type: Spontaneous
  Country: CA (occurrence: CA)
  Receive Date: 20140609
  Receipt Date: 20140609
  Transmission Date: 20141212
  Serious: Yes (Other)
  Sender: FDA-Public Use
  Company Number: CA-GLAXOSMITHKLINE-A1075973A

PATIENT
  Age: 67 Year
  Sex: Male
  Weight: 75 kg

DRUGS (4)
  1. AVODART [Suspect]
     Indication: PRODUCT USED FOR UNKNOWN INDICATION
     Dosage: .5MG PER DAY
     Route: 048
  2. FLOMAX [Concomitant]
     Route: 048
  3. RANITIDINE [Concomitant]
     Route: 048
  4. SYNTHROID [Concomitant]

REACTIONS (5)
  - Activities of daily living impaired [Recovered/Resolved]
  - Arthralgia [Recovered/Resolved]
  - Back pain [Recovered/Resolved]
  - Bone pain [Recovered/Resolved]
  - Musculoskeletal pain [Recovered/Resolved]
